FAERS Safety Report 16801262 (Version 1)
Quarter: 2019Q3

REPORT INFORMATION
  Report Type: Report from Study
  Country: NL (occurrence: NL)
  Receive Date: 20190912
  Receipt Date: 20190912
  Transmission Date: 20191005
  Serious: Yes (Other)
  Sender: FDA-Public Use
  Company Number: NL-AMGEN-NLDSL2019081261

PATIENT
  Age: 80 Year
  Sex: Female

DRUGS (16)
  1. DOXYCYCLINE. [Concomitant]
     Active Substance: DOXYCYCLINE
     Dosage: 100 MILLIGRAM
  2. ESCITALOPRAM [Concomitant]
     Active Substance: ESCITALOPRAM OXALATE
     Dosage: 20 MILLIGRAM PER MILLILITRE,1D15DR
  3. ACETYLSALICYLIC ACID [Concomitant]
     Active Substance: ASPIRIN
     Dosage: 80 MILLIGRAM, QD, 1D1T
  4. DICLOFENAC SODIUM. [Concomitant]
     Active Substance: DICLOFENAC SODIUM
     Dosage: 1 MILLIGRAM PER MILLILITRE (1 DROP), TID
  5. LOSARTAN. [Concomitant]
     Active Substance: LOSARTAN
     Dosage: 50 MILLIGRAM, QD,1D1T
  6. OMEPRAZOL [OMEPRAZOLE] [Concomitant]
     Active Substance: OMEPRAZOLE
     Dosage: 40 MILLIGRAM (1 CAPSULE), BID
  7. CALCIUM CARBONATE W/COLECALCIFEROL [Concomitant]
     Active Substance: CALCIUM CARBONATE\CHOLECALCIFEROL
     Dosage: 1000 MILLIGRAM,2,5G/880IE,1D1T
  8. XGEVA [Suspect]
     Active Substance: DENOSUMAB
     Indication: PROPHYLAXIS
     Dosage: 120 MILLIGRAM PER MILLILITRE, Q4WK
     Route: 065
  9. DUROGESIC [Concomitant]
     Active Substance: FENTANYL
     Dosage: 1X3D1P
  10. FUROSEMIDE. [Concomitant]
     Active Substance: FUROSEMIDE
     Dosage: 40 MILLIGRAM, BID
  11. TAMOXIFEN [Concomitant]
     Active Substance: TAMOXIFEN
     Dosage: 40 MILLIGRAM, QD,1D1T
  12. ETORICOXIB. [Concomitant]
     Active Substance: ETORICOXIB
     Dosage: 90 MILLIGRAM, QD
  13. HYDROCORTISON ACETATE [Concomitant]
     Dosage: 10 MILLIGRAM PER GRAM, QD
  14. SALBUTAMOL [Concomitant]
     Active Substance: ALBUTEROL
     Dosage: 200UG/DO 60DO DISKUS, 3D1INH
  15. CODEINE [Concomitant]
     Active Substance: CODEINE
     Dosage: 1.5 TABLET, TID
  16. DESLORATADINE. [Concomitant]
     Active Substance: DESLORATADINE
     Dosage: 90 MILLIGRAM, QD

REACTIONS (5)
  - Myalgia [Unknown]
  - Nausea [Unknown]
  - Asthenia [Unknown]
  - Dyspnoea [Unknown]
  - Fluid retention [Unknown]
